FAERS Safety Report 16176802 (Version 1)
Quarter: 2019Q2

REPORT INFORMATION
  Report Type: Spontaneous
  Country: FR (occurrence: FR)
  Receive Date: 20190409
  Receipt Date: 20190409
  Transmission Date: 20190711
  Serious: Yes (Hospitalization)
  Sender: FDA-Public Use
  Company Number: FR-BAUSCH-BL-2019-010569

PATIENT
  Age: 90 Year
  Sex: Female

DRUGS (5)
  1. MONAZOL 2 PERCENT CREAM [Suspect]
     Active Substance: SERTACONAZOLE
     Indication: FUNGAL INFECTION
     Route: 003
     Dates: start: 20150610, end: 20150624
  2. PPSB [Concomitant]
     Indication: PRODUCT USED FOR UNKNOWN INDICATION
  3. PREVISCAN (PENTOXIFYLLINE) [Suspect]
     Active Substance: PENTOXIFYLLINE
     Indication: PULMONARY EMBOLISM
     Route: 048
     Dates: start: 20150622, end: 20150623
  4. TRIFLUCAN [Suspect]
     Active Substance: FLUCONAZOLE
     Indication: FUNGAL INFECTION
     Route: 048
     Dates: start: 20150617, end: 20150624
  5. EXACYL [Concomitant]
     Active Substance: TRANEXAMIC ACID
     Indication: PRODUCT USED FOR UNKNOWN INDICATION

REACTIONS (3)
  - Rectal haemorrhage [Recovering/Resolving]
  - Blood loss anaemia [Recovering/Resolving]
  - Melaena [Recovering/Resolving]

NARRATIVE: CASE EVENT DATE: 20150625
